FAERS Safety Report 4319169-2 (Version None)
Quarter: 2004Q1

REPORT INFORMATION
  Report Type: 
  Country: None (occurrence: None)
  Receive Date: 20040315
  Receipt Date: 20031119
  Transmission Date: 20041129
  Serious: Yes (Other)
  Sender: FDA-Public Use
  Company Number: 2003186312US

PATIENT
  Sex: Female

DRUGS (1)
  1. BEXTRA [Suspect]
     Dosage: 10 MG, QD

REACTIONS (1)
  - RENAL FAILURE [None]
